FAERS Safety Report 8373140-2 (Version None)
Quarter: 2012Q2

REPORT INFORMATION
  Report Type: 
  Country: None (occurrence: None)
  Receive Date: 20120521
  Receipt Date: 20120516
  Transmission Date: 20120825
  Serious: Yes (Life-Threatening, Hospitalization)
  Sender: FDA-Public Use
  Company Number: FR-PFIZER INC-2012046255

PATIENT
  Age: 62 Year
  Sex: Female
  Weight: 50 kg

DRUGS (18)
  1. BACTRIM [Concomitant]
  2. CERTICAN [Concomitant]
  3. VITAMIN B1 AND B6 [Concomitant]
  4. CANCIDAS [Concomitant]
  5. ZOVIRAX [Concomitant]
  6. VITABACT [Concomitant]
  7. VFEND [Suspect]
     Indication: ASPERGILLUS TEST POSITIVE
     Dosage: UNK
     Route: 048
     Dates: start: 20111128, end: 20111207
  8. PREDNISONE TAB [Concomitant]
  9. CALCIUM CARBONATE [Concomitant]
  10. POTASSIUM CHLORIDE [Concomitant]
  11. FOLIC ACID [Concomitant]
  12. ROCEPHIN [Concomitant]
  13. CIPROFLOXACIN HYDROCHLORIDE [Concomitant]
  14. CICLOSPORIN [Concomitant]
  15. MIDAZOLAM [Concomitant]
  16. ATORVASTATIN [Concomitant]
  17. SOLU-MEDROL [Concomitant]
  18. SUFENTANIL [Concomitant]

REACTIONS (5)
  - HALLUCINATION [None]
  - MALAISE [None]
  - DISTURBANCE IN ATTENTION [None]
  - PRESYNCOPE [None]
  - LOSS OF CONSCIOUSNESS [None]
